FAERS Safety Report 5407581-X (Version None)
Quarter: 2007Q3

REPORT INFORMATION
  Report Type: 
  Country: None (occurrence: None)
  Receive Date: 20070807
  Receipt Date: 20070726
  Transmission Date: 20080115
  Serious: Yes (Other)
  Sender: FDA-Public Use
  Company Number: US-PFIZER INC-2003031788

PATIENT
  Sex: Female
  Weight: 76.2 kg

DRUGS (11)
  1. TIKOSYN [Suspect]
     Indication: ATRIAL FIBRILLATION
     Route: 048
  2. HYDROCHLOROTHIAZIDE [Suspect]
     Indication: HYPERTENSION
     Dosage: FREQ:UNKNOWN
     Route: 048
     Dates: start: 20030501, end: 20030724
  3. ATENOLOL [Concomitant]
     Route: 065
  4. WARFARIN SODIUM [Concomitant]
     Route: 065
  5. PREVACID [Concomitant]
     Route: 065
  6. ZESTRIL [Concomitant]
     Route: 065
  7. PRAVACHOL [Concomitant]
     Route: 065
  8. ALL OTHER THERAPEUTIC PRODUCTS [Concomitant]
     Route: 062
  9. MIACALCIN [Concomitant]
     Route: 065
  10. CALCIUM CHLORIDE [Concomitant]
     Route: 065
  11. CENTRUM [Concomitant]
     Route: 065

REACTIONS (8)
  - BACK PAIN [None]
  - BLOOD CALCIUM DECREASED [None]
  - BLOOD PRESSURE FLUCTUATION [None]
  - HEART RATE INCREASED [None]
  - HERPES ZOSTER [None]
  - INFECTION [None]
  - NERVE COMPRESSION [None]
  - PAIN [None]
